FAERS Safety Report 7546420-8 (Version None)
Quarter: 2011Q2

REPORT INFORMATION
  Report Type: 
  Country: None (occurrence: None)
  Receive Date: 20110614
  Receipt Date: 20110104
  Transmission Date: 20111010
  Serious: Yes (Hospitalization, Other)
  Sender: FDA-Public Use
  Company Number: US-BAYER-201024169NA

PATIENT
  Age: 46 Year
  Sex: Female
  Weight: 100.23 kg

DRUGS (8)
  1. AMOXICILLIN [Concomitant]
     Dosage: UNK
     Dates: start: 20070101
  2. IBUPROFEN [Concomitant]
     Dosage: UNK
     Dates: start: 20090101
  3. DROSPIRENONE AND ETHINYL ESTRADIOL [Suspect]
     Indication: PRODUCT USED FOR UNKNOWN INDICATION
     Dosage: UNK
     Route: 048
     Dates: start: 20070708, end: 20091201
  4. AMOXICILLIN [Concomitant]
     Dosage: UNK
     Dates: start: 20090101
  5. CIPROFLOXACIN [Concomitant]
     Dosage: UNK
     Dates: start: 20080101
  6. CYCLOBENZAPRINE [Concomitant]
     Dosage: UNK
     Dates: start: 20090101
  7. RESTASIS [Concomitant]
     Dosage: UNK
     Dates: start: 20090101
  8. ACYCLOVIR [Concomitant]
     Dosage: UNK
     Dates: start: 20080101

REACTIONS (3)
  - ANXIETY [None]
  - DEPRESSION [None]
  - DEEP VEIN THROMBOSIS [None]
